FAERS Safety Report 9055424 (Version 1)
Quarter: 2013Q1

REPORT INFORMATION
  Report Type: Spontaneous
  Country: US (occurrence: US)
  Receive Date: 20130206
  Receipt Date: 20130206
  Transmission Date: 20140127
  Serious: Yes (Disabling)
  Sender: FDA-Public Use
  Company Number: US-PURDUE-USA-2013-0098365

PATIENT
  Age: 25 Year
  Sex: Male

DRUGS (2)
  1. OXYCONTIN (NDA 22-272) [Suspect]
     Indication: PRODUCT USED FOR UNKNOWN INDICATION
     Route: 048
  2. UNSPECIFIED INGREDIENT [Suspect]
     Indication: DRUG WITHDRAWAL SYNDROME

REACTIONS (3)
  - Road traffic accident [Unknown]
  - Impaired driving ability [Unknown]
  - Drug withdrawal syndrome [Unknown]
